FAERS Safety Report 20127665 (Version 1)
Quarter: 2021Q4

REPORT INFORMATION
  Report Type: Spontaneous
  Country: US (occurrence: None)
  Receive Date: 20211129
  Receipt Date: 20211129
  Transmission Date: 20220303
  Serious: No
  Sender: FDA-Public Use
  Company Number: None

PATIENT
  Sex: Male

DRUGS (8)
  1. VIGABATRIN [Suspect]
     Active Substance: VIGABATRIN
     Indication: Idiopathic generalised epilepsy
     Dosage: FREQUENCY : TWICE A DAY;?OTHER ROUTE : 2 PACKETS  VIA  G TUBE 2 TIMES DAILY;?
     Route: 050
  2. EPIDIOLEX [Concomitant]
     Active Substance: CANNABIDIOL
  3. OMEPRAZOLE [Concomitant]
     Active Substance: OMEPRAZOLE
  4. VITAMIN B6 [Concomitant]
     Active Substance: PYRIDOXINE HYDROCHLORIDE
  5. MAGNESIUM L-LACTATE DIHYR [Concomitant]
  6. KEPPRA [Concomitant]
     Active Substance: LEVETIRACETAM
  7. TOPIRAMATE [Concomitant]
     Active Substance: TOPIRAMATE
  8. PREDNISOLONE [Concomitant]
     Active Substance: PREDNISOLONE

REACTIONS (1)
  - Epilepsy [None]
